FAERS Safety Report 8616266-8 (Version None)
Quarter: 2012Q3

REPORT INFORMATION
  Report Type: 
  Country: None (occurrence: None)
  Receive Date: 20120815
  Receipt Date: 20120815
  Transmission Date: 20120928
  Serious: No
  Sender: FDA-Public Use
  Company Number: None

PATIENT
  Sex: Female

DRUGS (1)
  1. LEVOFLOXACIN [Suspect]
     Dosage: 500MG
     Dates: start: 20120717, end: 20120717

REACTIONS (3)
  - INFUSION SITE PRURITUS [None]
  - HYPERSENSITIVITY [None]
  - INFUSION SITE ERYTHEMA [None]
